FAERS Safety Report 9340430 (Version 2)
Quarter: 2013Q3

REPORT INFORMATION
  Report Type: Spontaneous
  Country: ES (occurrence: ES)
  Receive Date: 20130610
  Receipt Date: 20130820
  Transmission Date: 20140515
  Serious: Yes (Other)
  Sender: FDA-Public Use
  Company Number: ES-TEVA-411294USA

PATIENT
  Age: 57 Year
  Sex: Female

DRUGS (14)
  1. BENDAMUSTINE HCL [Suspect]
     Indication: WALDENSTROM^S MACROGLOBULINAEMIA RECURRENT
     Route: 042
     Dates: start: 20130109
  2. BENDAMUSTINE HCL [Suspect]
     Route: 042
  3. BENDAMUSTINE HCL [Suspect]
     Route: 042
  4. RITUXIMAB [Suspect]
     Indication: WALDENSTROM^S MACROGLOBULINAEMIA RECURRENT
     Route: 042
     Dates: start: 20130109
  5. RITUXIMAB [Suspect]
     Route: 058
  6. RITUXIMAB [Suspect]
     Route: 058
  7. PREDNISONE [Suspect]
     Indication: WALDENSTROM^S MACROGLOBULINAEMIA RECURRENT
     Route: 048
     Dates: start: 20130109
  8. PREDNISONE [Suspect]
     Route: 048
  9. PREDNISONE [Suspect]
     Route: 048
  10. ASPIRIN [Concomitant]
     Indication: THROMBOSIS PROPHYLAXIS
     Dates: start: 20070611
  11. ALLOPURINOL [Concomitant]
     Indication: PROPHYLAXIS
     Dates: start: 20050922
  12. COLIRCUSI COLLYRIUM [Concomitant]
     Indication: DIABETIC RETINOPATHY
     Dates: start: 20120715
  13. FUROSEMIDE [Concomitant]
     Indication: HYPERTENSION
     Dates: start: 19870615, end: 20130403
  14. INSULIN [Concomitant]
     Indication: DIABETES MELLITUS
     Dosage: UNITS
     Dates: start: 19640615

REACTIONS (1)
  - Interstitial lung disease [Recovering/Resolving]
